FAERS Safety Report 20410274 (Version 1)
Quarter: 2022Q1

REPORT INFORMATION
  Report Type: Spontaneous
  Country: US (occurrence: None)
  Receive Date: 20220131
  Receipt Date: 20220131
  Transmission Date: 20220423
  Serious: Yes (Hospitalization)
  Sender: FDA-Public Use
  Company Number: None

PATIENT
  Age: 73 Year
  Sex: Male
  Weight: 121.95 kg

DRUGS (14)
  1. CABAZITAXEL [Suspect]
     Active Substance: CABAZITAXEL
     Indication: Prostate cancer
     Dosage: FREQUENCY : ONCE;?
     Route: 042
  2. CARBOPLATIN [Suspect]
     Active Substance: CARBOPLATIN
     Indication: Prostate cancer
     Dosage: FREQUENCY : ONCE;?
     Route: 042
  3. ASPIRIN [Concomitant]
     Active Substance: ASPIRIN
     Dates: start: 20150521
  4. ATORVASTATIN [Concomitant]
     Active Substance: ATORVASTATIN
     Dates: start: 20150521
  5. CHONDROITIN SULFATE (BOVINE) [Concomitant]
     Active Substance: CHONDROITIN SULFATE (BOVINE)
     Dates: start: 20220106
  6. FISH OIL [Concomitant]
     Active Substance: FISH OIL
     Dates: start: 20210927
  7. EPINEPHRINE [Concomitant]
     Active Substance: EPINEPHRINE
     Dates: start: 20150604
  8. GLIMEPIRIDE [Concomitant]
     Active Substance: GLIMEPIRIDE
     Dates: start: 20150428
  9. GLUCOSAMINE [Concomitant]
     Active Substance: GLUCOSAMINE
     Dates: start: 20220106
  10. HYDROCHLOROTHIAZIDE [Concomitant]
     Active Substance: HYDROCHLOROTHIAZIDE
     Dates: start: 20210927
  11. METOPROLOL SUCCINATE [Concomitant]
     Active Substance: METOPROLOL SUCCINATE
     Dates: start: 20150518
  12. VITAMIN D3 [Concomitant]
     Active Substance: CHOLECALCIFEROL
     Dates: start: 20220106
  13. NIACIN [Concomitant]
     Active Substance: NIACIN
     Dates: start: 20150518
  14. NIFEDIPINE [Concomitant]
     Active Substance: NIFEDIPINE
     Dates: start: 20150521

REACTIONS (5)
  - Seizure like phenomena [None]
  - Blood glucose increased [None]
  - Amnesia [None]
  - Dizziness [None]
  - Nausea [None]

NARRATIVE: CASE EVENT DATE: 20220128
